FAERS Safety Report 6172239-9 (Version None)
Quarter: 2009Q2

REPORT INFORMATION
  Report Type: 
  Country: None (occurrence: None)
  Receive Date: 20090429
  Receipt Date: 20090421
  Transmission Date: 20091009
  Serious: Yes (Death)
  Sender: FDA-Public Use
  Company Number: US-CELGENEUS-163-21880-09042263

PATIENT

DRUGS (3)
  1. REVLIMID [Suspect]
     Indication: AMYLOIDOSIS
     Route: 048
  2. REVLIMID [Suspect]
     Route: 048
  3. DEXAMETHASONE 4MG TAB [Suspect]
     Indication: AMYLOIDOSIS
     Route: 065

REACTIONS (1)
  - DEATH [None]
